FAERS Safety Report 6524239-4 (Version None)
Quarter: 2009Q4

REPORT INFORMATION
  Report Type: 
  Country: None (occurrence: None)
  Receive Date: 20091230
  Receipt Date: 20091230
  Transmission Date: 20100525
  Serious: Yes (Life-Threatening)
  Sender: FDA-Public Use
  Company Number: None

PATIENT
  Age: 54 Year
  Sex: Male
  Weight: 89 kg

DRUGS (1)
  1. VITAMIN D [Suspect]
     Indication: VITAMIN D DEFICIENCY
     Dosage: 1ST WEEK 1 DAILY, THEN 1 WEEK1 PO
     Route: 048
     Dates: start: 20091118, end: 20091125

REACTIONS (3)
  - ASTHMA [None]
  - IMPAIRED WORK ABILITY [None]
  - REACTION TO DRUG EXCIPIENTS [None]
